FAERS Safety Report 19043424 (Version 1)
Quarter: 2021Q1

REPORT INFORMATION
  Report Type: Spontaneous
  Country: DE (occurrence: DE)
  Receive Date: 20210323
  Receipt Date: 20210323
  Transmission Date: 20210420
  Serious: Yes (Hospitalization)
  Sender: FDA-Public Use
  Company Number: DE-PFIZER INC-2021288688

PATIENT
  Age: 39 Year
  Sex: Female
  Weight: 110 kg

DRUGS (3)
  1. ESCITALOPRAM [Suspect]
     Active Substance: ESCITALOPRAM OXALATE
     Dosage: 20 MG TABLET, 1X/DAY
     Route: 048
  2. DESOGESTREL [Concomitant]
     Active Substance: DESOGESTREL
     Dosage: 0.075 MG TABLET, 1X/DAY
     Route: 048
  3. PREGABALIN. [Suspect]
     Active Substance: PREGABALIN
     Dosage: 150 MG, 2X/DAY
     Route: 048

REACTIONS (3)
  - Anxiety [Unknown]
  - Gamma-glutamyltransferase increased [Unknown]
  - General physical health deterioration [Unknown]

NARRATIVE: CASE EVENT DATE: 20200810
